FAERS Safety Report 11389320 (Version 1)
Quarter: 2015Q3

REPORT INFORMATION
  Report Type: Spontaneous
  Country: FR (occurrence: FR)
  Receive Date: 20150817
  Receipt Date: 20150817
  Transmission Date: 20151125
  Serious: Yes (Hospitalization)
  Sender: FDA-Public Use
  Company Number: FR-PFIZER INC-2015266882

PATIENT
  Sex: Female
  Weight: 1.7 kg

DRUGS (3)
  1. SOLIAN [Suspect]
     Active Substance: AMISULPRIDE
     Dosage: 100 MG, DAILY
     Route: 064
     Dates: start: 201505
  2. PROZAC [Suspect]
     Active Substance: FLUOXETINE HYDROCHLORIDE
     Dosage: 20 MG, DAILY
     Route: 064
     Dates: start: 201505
  3. XANAX [Suspect]
     Active Substance: ALPRAZOLAM
     Dosage: 0.25 MG, DAILY
     Route: 064
     Dates: start: 201505

REACTIONS (5)
  - Respiratory disorder neonatal [Recovered/Resolved]
  - Maternal exposure during pregnancy [Recovered/Resolved]
  - Premature baby [Recovered/Resolved]
  - Foetal growth restriction [Recovered/Resolved]
  - Hypoglycaemia [Recovered/Resolved]

NARRATIVE: CASE EVENT DATE: 201505
